FAERS Safety Report 8576007-X (Version None)
Quarter: 2012Q3

REPORT INFORMATION
  Report Type: 
  Country: None (occurrence: None)
  Receive Date: 20120807
  Receipt Date: 20120227
  Transmission Date: 20120928
  Serious: Yes (Hospitalization)
  Sender: FDA-Public Use
  Company Number: DE-CELGENEUS-062-50794-12053199

PATIENT
  Sex: Male

DRUGS (11)
  1. RED BLOOD CELLS [Concomitant]
     Dosage: 3
     Route: 065
  2. PLATELETS [Concomitant]
     Dosage: 1
     Route: 065
     Dates: start: 20110418
  3. RED BLOOD CELLS [Concomitant]
     Route: 065
     Dates: start: 20100901, end: 20110221
  4. RED BLOOD CELLS [Concomitant]
     Dosage: 4
     Route: 065
     Dates: start: 20110418
  5. PLATELETS [Concomitant]
     Dosage: 7
     Route: 065
     Dates: start: 20111101
  6. VIDAZA [Suspect]
     Route: 065
     Dates: start: 20110411, end: 20111114
  7. RED BLOOD CELLS [Concomitant]
     Dosage: 6
     Route: 065
     Dates: start: 20111108
  8. PLATELETS [Concomitant]
     Dosage: 1
     Route: 065
  9. RED BLOOD CELLS [Concomitant]
     Dosage: 8
     Route: 065
     Dates: start: 20110527
  10. PLATELETS [Concomitant]
     Dosage: 3
     Route: 065
     Dates: start: 20110527
  11. CIPROFLOXACIN [Concomitant]
     Dosage: 1000 MILLIGRAM
     Route: 065

REACTIONS (5)
  - PYREXIA [None]
  - GENERAL PHYSICAL HEALTH DETERIORATION [None]
  - OLIGODENDROGLIOMA [None]
  - INJECTION SITE REACTION [None]
  - RASH MACULAR [None]
